FAERS Safety Report 14763600 (Version 2)
Quarter: 2018Q2

REPORT INFORMATION
  Report Type: Spontaneous
  Country: FR (occurrence: FR)
  Receive Date: 20180416
  Receipt Date: 20180424
  Transmission Date: 20180711
  Serious: Yes (Hospitalization)
  Sender: FDA-Public Use
  Company Number: FR-BAYER-2018-071614

PATIENT
  Age: 19 Year
  Sex: Female
  Weight: 51 kg

DRUGS (5)
  1. JAYDESS [Suspect]
     Active Substance: LEVONORGESTREL
     Indication: MENORRHAGIA
     Dosage: 14 MCG/24HR, CONT
     Route: 015
  2. ACUPAN [Concomitant]
     Active Substance: NEFOPAM HYDROCHLORIDE
  3. ANTADYS [Concomitant]
     Active Substance: FLURBIPROFEN
  4. TOPALGIC LP [Concomitant]
     Active Substance: TRAMADOL HYDROCHLORIDE
  5. DAFALGAN CODEINE [Concomitant]
     Active Substance: ACETAMINOPHEN\CODEINE PHOSPHATE

REACTIONS (3)
  - Endometriosis [Not Recovered/Not Resolved]
  - Ectopic pregnancy with contraceptive device [Recovering/Resolving]
  - Drug ineffective [Not Recovered/Not Resolved]

NARRATIVE: CASE EVENT DATE: 20171020
